FAERS Safety Report 26213115 (Version 1)
Quarter: 2025Q4

REPORT INFORMATION
  Report Type: Spontaneous
  Country: CA (occurrence: CA)
  Receive Date: 20251230
  Receipt Date: 20251230
  Transmission Date: 20260118
  Serious: Yes (Other)
  Sender: TEVA
  Company Number: CA-TEVA-VS-3407475

PATIENT
  Age: 47 Year
  Sex: Male

DRUGS (6)
  1. AZATHIOPRINE [Suspect]
     Active Substance: AZATHIOPRINE
     Indication: Prophylaxis against transplant rejection
     Dosage: DOSE FORM: NOT SPECIFIED
     Route: 065
  2. TACROLIMUS [Suspect]
     Active Substance: TACROLIMUS
     Indication: Prophylaxis against transplant rejection
     Route: 065
  3. MYCOPHENOLATE MOFETIL [Suspect]
     Active Substance: MYCOPHENOLATE MOFETIL
     Indication: Prophylaxis against transplant rejection
     Route: 065
  4. RITUXIMAB [Suspect]
     Active Substance: RITUXIMAB
     Indication: Prophylaxis against transplant rejection
     Route: 065
  5. CYCLOPHOSPHAMIDE [Suspect]
     Active Substance: CYCLOPHOSPHAMIDE
     Indication: Prophylaxis against transplant rejection
     Dosage: DOSE FORM: NOT SPECIFIED
     Route: 065
  6. HYDROXYCHLOROQUINE [Suspect]
     Active Substance: HYDROXYCHLOROQUINE
     Indication: Prophylaxis against transplant rejection
     Route: 065

REACTIONS (7)
  - Cytomegalovirus viraemia [Recovered/Resolved]
  - Herpes zoster [Recovered/Resolved]
  - Listeraemia [Recovered/Resolved]
  - Enterobacter infection [Recovered/Resolved]
  - Empyema [Recovered/Resolved]
  - Latent tuberculosis [Recovered/Resolved]
  - COVID-19 [Recovered/Resolved]
